FAERS Safety Report 7870008-2 (Version None)
Quarter: 2011Q4

REPORT INFORMATION
  Report Type: 
  Country: None (occurrence: None)
  Receive Date: 20111027
  Receipt Date: 20111017
  Transmission Date: 20120403
  Serious: Yes (Hospitalization)
  Sender: FDA-Public Use
  Company Number: 123300-1

PATIENT
  Age: 10 Year
  Sex: Male

DRUGS (2)
  1. CYTARABINE [Suspect]
     Indication: B PRECURSOR TYPE ACUTE LEUKAEMIA
     Dosage: 30 MG TOTAL/IV
     Route: 042
     Dates: start: 20110526
  2. DAUNORUBICIN HCL [Suspect]
     Indication: B PRECURSOR TYPE ACUTE LEUKAEMIA
     Dosage: 100MG TOTAL/IV
     Route: 042
     Dates: start: 20110526

REACTIONS (5)
  - PAIN [None]
  - HYPOTENSION [None]
  - PYREXIA [None]
  - COLITIS [None]
  - PRESYNCOPE [None]
